FAERS Safety Report 8314130-5 (Version None)
Quarter: 2012Q2

REPORT INFORMATION
  Report Type: 
  Country: None (occurrence: None)
  Receive Date: 20120426
  Receipt Date: 20120420
  Transmission Date: 20120825
  Serious: Yes (Hospitalization)
  Sender: FDA-Public Use
  Company Number: CA-SANOFI-AVENTIS-2012SA028063

PATIENT
  Sex: Male

DRUGS (18)
  1. ASPIRIN [Concomitant]
     Route: 048
     Dates: start: 20110201
  2. BISOPROLOL FUMARATE [Concomitant]
  3. VITAMIN D [Concomitant]
  4. ROSUVASTATIN [Concomitant]
  5. PNEUMOVAX 23 [Concomitant]
  6. PREDNISONE TAB [Concomitant]
     Indication: MULTIPLE MYELOMA
     Dosage: 120MG DAYS 1, 4, 8 AND 11 OF 21 DAYS CYCLE
  7. ASPIRIN [Concomitant]
     Route: 048
     Dates: start: 20110201
  8. ZYPREXA [Concomitant]
     Dosage: 5MG AT BEDTIME
     Route: 048
  9. PLAVIX [Suspect]
     Route: 048
     Dates: start: 20110201
  10. ALL OTHER THERAPEUTIC PRODUCTS [Concomitant]
     Route: 065
  11. ENGERIX-B [Concomitant]
  12. MELPHALAN HYDROCHLORIDE [Concomitant]
     Indication: MULTIPLE MYELOMA
     Dosage: 10MG DAYS 1, 4,8 AND 11 OF 21 DAYS CYCLE
     Dates: start: 20120209
  13. VELCADE [Concomitant]
     Indication: MULTIPLE MYELOMA
     Dosage: DOSE UNK ON DAYS 1, 4,8 AND 11 OF 21 DAYS CYCLE
     Dates: start: 20120209
  14. PLAVIX [Suspect]
     Route: 048
     Dates: start: 20110201
  15. ARANESP [Concomitant]
  16. GLYCERYL TRINITRATE [Concomitant]
  17. DEXAMETHASONE [Concomitant]
     Indication: MULTIPLE MYELOMA
     Dates: start: 20120209
  18. PANTOPRAZOLE [Concomitant]

REACTIONS (7)
  - MYOCARDIAL INFARCTION [None]
  - WEIGHT DECREASED [None]
  - COLONIC POLYP [None]
  - RENAL IMPAIRMENT [None]
  - GASTROENTERITIS [None]
  - MULTIPLE MYELOMA [None]
  - LUNG DISORDER [None]
